FAERS Safety Report 4447654-1 (Version None)
Quarter: 2004Q3

REPORT INFORMATION
  Report Type: 
  Country: None (occurrence: None)
  Receive Date: 20040913
  Receipt Date: 20040901
  Transmission Date: 20050211
  Serious: Yes (Hospitalization)
  Sender: FDA-Public Use
  Company Number: PHEH2004US09550

PATIENT
  Age: 43 Year
  Sex: Female

DRUGS (2)
  1. ZELNORM [Suspect]
     Indication: IRRITABLE BOWEL SYNDROME
     Dosage: UNK, BID
     Route: 048
     Dates: start: 20040801, end: 20040810
  2. ZELNORM [Suspect]
     Dosage: UNK, BID
     Route: 048
     Dates: start: 20040827, end: 20040828

REACTIONS (4)
  - ABDOMINAL PAIN [None]
  - BLOOD PRESSURE DECREASED [None]
  - PYREXIA [None]
  - VOMITING [None]
